FAERS Safety Report 25483753 (Version 1)
Quarter: 2025Q2

REPORT INFORMATION
  Report Type: Report from Study
  Country: CO (occurrence: CO)
  Receive Date: 20250626
  Receipt Date: 20250626
  Transmission Date: 20250717
  Serious: Yes (Hospitalization)
  Sender: ASTELLAS
  Company Number: CO-ASTELLAS-2022US036862

PATIENT
  Age: 27 Year
  Sex: Male
  Weight: 52 kg

DRUGS (1)
  1. TACROLIMUS [Suspect]
     Active Substance: TACROLIMUS
     Indication: Renal transplant
     Route: 048
     Dates: start: 20191023

REACTIONS (4)
  - Respiratory symptom [Recovering/Resolving]
  - Bacterial infection [Recovering/Resolving]
  - Bronchitis [Unknown]
  - COVID-19 [Recovering/Resolving]

NARRATIVE: CASE EVENT DATE: 20220601
